FAERS Safety Report 16844977 (Version 1)
Quarter: 2019Q4

REPORT INFORMATION
  Report Type: Spontaneous
  Country: US (occurrence: US)
  Receive Date: 20190924
  Receipt Date: 20190924
  Transmission Date: 20200122
  Serious: Yes (Death, Life-Threatening, Hospitalization)
  Sender: FDA-Public Use
  Company Number: None

PATIENT
  Age: 66 Year
  Sex: Female
  Weight: 60.75 kg

DRUGS (5)
  1. BREO ELLIPTA [Suspect]
     Active Substance: FLUTICASONE FUROATE\VILANTEROL TRIFENATATE
     Indication: ASTHMA
     Dosage: ?          OTHER STRENGTH:MCG;QUANTITY:1 INHALATION(S);?
     Route: 055
     Dates: start: 20190829, end: 20190831
  2. ABUTEROL SULFATE [Concomitant]
     Active Substance: ALBUTEROL SULFATE
  3. NINGXIA RED [Concomitant]
  4. SULFURZYME [Concomitant]
  5. VITAMIN B [Concomitant]
     Active Substance: VITAMIN B

REACTIONS (3)
  - Asphyxia [None]
  - Bronchospasm [None]
  - Cardiac arrest [None]

NARRATIVE: CASE EVENT DATE: 20190831
